FAERS Safety Report 7759511-3 (Version None)
Quarter: 2011Q3

REPORT INFORMATION
  Report Type: 
  Country: None (occurrence: None)
  Receive Date: 20110919
  Receipt Date: 20110919
  Transmission Date: 20111222
  Serious: Yes (Disabling)
  Sender: FDA-Public Use
  Company Number: None

PATIENT
  Sex: Female
  Weight: 70.306 kg

DRUGS (2)
  1. CITALOPRAM HYDROBROMIDE [Suspect]
     Indication: ANXIETY
     Dosage: 10MG
     Route: 048
     Dates: start: 20110906, end: 20110914
  2. CITALOPRAM HYDROBROMIDE [Suspect]
     Indication: OBSESSIVE-COMPULSIVE DISORDER
     Dosage: 10MG
     Route: 048
     Dates: start: 20110906, end: 20110914

REACTIONS (7)
  - BURNING SENSATION [None]
  - FEELING HOT [None]
  - PRURITUS [None]
  - RASH [None]
  - BLISTER [None]
  - ERYTHEMA [None]
  - URTICARIA [None]
